FAERS Safety Report 8518813-3 (Version None)
Quarter: 2012Q3

REPORT INFORMATION
  Report Type: 
  Country: None (occurrence: None)
  Receive Date: 20120709
  Receipt Date: 20120703
  Transmission Date: 20120928
  Serious: Yes (Hospitalization)
  Sender: FDA-Public Use
  Company Number: 2012032779

PATIENT
  Age: 70 Year
  Sex: Male
  Weight: 81.6475 kg

DRUGS (13)
  1. PRIVIGEN [Suspect]
     Indication: CHRONIC INFLAMMATORY DEMYELINATING POLYRADICULONEUROPATHY
     Dosage: (35 G 1X/WEEK, 5 GM VIAL INTRAVENOUS (NOT OTHERWISE SPECIFIED))
     Route: 042
     Dates: start: 20120626, end: 20120626
  2. LIDOCAINE PRILOCAINE (EMLA /00675501/) [Concomitant]
  3. RAMIPRIL [Concomitant]
  4. EPIPEN [Concomitant]
  5. LOVENOX [Concomitant]
  6. ATENOLOL [Concomitant]
  7. SODIUM CHLORIDE 0.9% [Concomitant]
  8. ACETAMINOPHEN [Concomitant]
  9. PREVACID [Concomitant]
  10. DIPHENHYDRAMINE HCL [Concomitant]
  11. ASPIRIN [Concomitant]
  12. SOLU-CORTEF [Concomitant]
  13. PROMETHAZINE [Concomitant]

REACTIONS (2)
  - MOBILITY DECREASED [None]
  - LUNG DISORDER [None]
